FAERS Safety Report 12093115 (Version 2)
Quarter: 2016Q1

REPORT INFORMATION
  Report Type: Spontaneous
  Country: US (occurrence: US)
  Receive Date: 20160219
  Receipt Date: 20160222
  Transmission Date: 20160526
  Serious: No
  Sender: FDA-Public Use
  Company Number: US-TEVA-584662USA

PATIENT
  Sex: Female

DRUGS (1)
  1. AMPHETAMINE W/DEXTROAMPHETAMINE [Suspect]
     Active Substance: AMPHETAMINE SULFATE\DEXTROAMPHETAMINE
     Route: 065

REACTIONS (6)
  - Disturbance in attention [Unknown]
  - Hunger [Unknown]
  - Weight increased [Unknown]
  - Drug effect decreased [Unknown]
  - Product substitution issue [Unknown]
  - Weight fluctuation [Unknown]
